FAERS Safety Report 8586123-4 (Version None)
Quarter: 2012Q3

REPORT INFORMATION
  Report Type: 
  Country: None (occurrence: None)
  Receive Date: 20120810
  Receipt Date: 20120803
  Transmission Date: 20120928
  Serious: Yes (Death, Hospitalization, Other)
  Sender: FDA-Public Use
  Company Number: US-PFIZER INC-2011308671

PATIENT
  Age: 69 Year
  Sex: Female

DRUGS (3)
  1. REVATIO [Suspect]
     Indication: PULMONARY HYPERTENSION
     Dosage: 20 MG, 3X/DAY
     Dates: start: 20110711
  2. REVATIO [Suspect]
     Indication: SCLERODERMA
  3. REVATIO [Suspect]

REACTIONS (7)
  - GALLBLADDER DISORDER [None]
  - RENAL DISORDER [None]
  - CARDIAC DISORDER [None]
  - DEATH [None]
  - CEREBROVASCULAR ACCIDENT [None]
  - NEPHROPATHY [None]
  - CLOSTRIDIAL INFECTION [None]
